FAERS Safety Report 9494689 (Version 1)
Quarter: 2013Q3

REPORT INFORMATION
  Report Type: Report from Study
  Country: KR (occurrence: KR)
  Receive Date: 20130903
  Receipt Date: 20130903
  Transmission Date: 20140515
  Serious: Yes (Other)
  Sender: FDA-Public Use
  Company Number: KR-UCBSA-096599

PATIENT
  Sex: 0

DRUGS (1)
  1. LEVETIRACETAM [Suspect]

REACTIONS (1)
  - Convulsion [Unknown]
